FAERS Safety Report 10435590 (Version 2)
Quarter: 2014Q4

REPORT INFORMATION
  Report Type: Spontaneous
  Country: GB (occurrence: GB)
  Receive Date: 20140908
  Receipt Date: 20141114
  Transmission Date: 20150528
  Serious: Yes (Disabling)
  Sender: FDA-Public Use
  Company Number: GB-BRISTOL-MYERS SQUIBB COMPANY-21334842

PATIENT
  Age: 81 Year
  Sex: Female
  Weight: 59 kg

DRUGS (22)
  1. ASPIRIN. [Concomitant]
     Active Substance: ASPIRIN
     Dates: start: 20140425
  2. CANDESARTAN [Concomitant]
     Active Substance: CANDESARTAN
     Dates: start: 20140425
  3. MIRTAZAPINE. [Concomitant]
     Active Substance: MIRTAZAPINE
     Dates: start: 20140530, end: 20140613
  4. NITRAZEPAM [Concomitant]
     Active Substance: NITRAZEPAM
     Dates: start: 20140425
  5. TYLEX [Concomitant]
     Active Substance: ACETAMINOPHEN\CODEINE PHOSPHATE
     Dates: start: 20140425
  6. SODIUM ALGINATE [Concomitant]
     Active Substance: SODIUM ALGINATE
     Dates: start: 20140717, end: 20140729
  7. SODIUM ALGINATE [Concomitant]
     Active Substance: SODIUM ALGINATE
     Dates: start: 20140520, end: 20140601
  8. SIMVASTATIN. [Concomitant]
     Active Substance: SIMVASTATIN
     Dates: start: 20140425
  9. ALENDRONIC ACID [Concomitant]
     Active Substance: ALENDRONIC ACID
     Dates: start: 20140425
  10. DIHYDROCODEINE [Concomitant]
     Active Substance: DIHYDROCODEINE
     Dates: start: 20140708, end: 20140718
  11. SERTRALINE [Concomitant]
     Active Substance: SERTRALINE HYDROCHLORIDE
     Dates: start: 20140425, end: 20140523
  12. CHOLECALCIFEROL [Concomitant]
     Active Substance: CHOLECALCIFEROL
     Dates: start: 20140717
  13. FELODIPINE. [Concomitant]
     Active Substance: FELODIPINE
     Dates: start: 20140626
  14. ISOTARD XL [Concomitant]
     Dates: start: 20140425, end: 20140523
  15. ELIQUIS [Suspect]
     Active Substance: APIXABAN
     Indication: THROMBOSIS PROPHYLAXIS
     Route: 048
     Dates: start: 20140425, end: 20140523
  16. LANSOPRAZOLE. [Concomitant]
     Active Substance: LANSOPRAZOLE
     Dates: start: 20140425
  17. LOPERAMIDE [Concomitant]
     Active Substance: LOPERAMIDE
     Dates: start: 20140425
  18. PARACETAMOL [Concomitant]
     Active Substance: ACETAMINOPHEN
     Dates: start: 20140708, end: 20140805
  19. SODIUM ALGINATE [Concomitant]
     Active Substance: SODIUM ALGINATE
     Dates: start: 20140626, end: 20140708
  20. XARELTO [Concomitant]
     Active Substance: RIVAROXABAN
     Dates: start: 20140722
  21. CALCIUM CARBONATE. [Concomitant]
     Active Substance: CALCIUM CARBONATE
     Dates: start: 20140425, end: 20140724
  22. SODIUM BICARBONATE. [Concomitant]
     Active Substance: SODIUM BICARBONATE

REACTIONS (2)
  - Abdominal discomfort [Unknown]
  - Nightmare [Recovered/Resolved]

NARRATIVE: CASE EVENT DATE: 20140806
